FAERS Safety Report 4995635-1 (Version None)
Quarter: 2006Q2

REPORT INFORMATION
  Report Type: 
  Country: None (occurrence: None)
  Receive Date: 20060504
  Receipt Date: 20060425
  Transmission Date: 20061013
  Serious: Yes (Other)
  Sender: FDA-Public Use
  Company Number: 2006050026

PATIENT
  Sex: Female

DRUGS (3)
  1. XANAX [Suspect]
     Indication: NERVOUSNESS
     Dosage: 3 MG (1 MG, TID INTERVAL: EVERY DAY)
  2. LORTAB [Suspect]
     Indication: KNEE ARTHROPLASTY
     Dosage: 22.5 MG (7.5 MG,  TID INTERVAL: EVERY DAY)
  3. AZO-STANDARD (PHENAZOPYRIDINE HYDROCHLORIDE) [Concomitant]

REACTIONS (11)
  - BLADDER PAIN [None]
  - CHEST PAIN [None]
  - DELIRIUM [None]
  - DYSURIA [None]
  - FATIGUE [None]
  - KNEE ARTHROPLASTY [None]
  - LEUKAEMIA [None]
  - MEMORY IMPAIRMENT [None]
  - PLATELET DISORDER [None]
  - SPEECH DISORDER [None]
  - URINARY INCONTINENCE [None]
